FAERS Safety Report 21277691 (Version 2)
Quarter: 2023Q2

REPORT INFORMATION
  Report Type: Report from Study
  Country: US (occurrence: US)
  Receive Date: 20220831
  Receipt Date: 20230424
  Transmission Date: 20230721
  Serious: Yes (Hospitalization, Other)
  Sender: FDA-Public Use
  Company Number: US-ABBVIE-22K-163-4330296-00

PATIENT
  Age: 63 Year
  Sex: Male
  Weight: 95 kg

DRUGS (5)
  1. HUMIRA [Suspect]
     Active Substance: ADALIMUMAB
     Indication: Crohn^s disease
     Route: 058
     Dates: start: 2012
  2. HUMIRA [Suspect]
     Active Substance: ADALIMUMAB
     Indication: Psoriasis
     Route: 058
     Dates: start: 20080402
  3. HUMIRA [Suspect]
     Active Substance: ADALIMUMAB
     Indication: Colitis ulcerative
  4. Covid-19 Vaccine Johnson and Johnson [Concomitant]
     Indication: COVID-19 immunisation
     Dosage: TIME INTERVAL: 1 TOTAL
     Route: 030
     Dates: start: 202110, end: 202110
  5. Covid-19 Vaccine Johnson and Johnson [Concomitant]
     Indication: COVID-19 immunisation
     Dosage: TIME INTERVAL: 1 TOTAL
     Route: 030
     Dates: start: 202109, end: 202109

REACTIONS (11)
  - Anorectal operation [Recovering/Resolving]
  - Unevaluable event [Recovering/Resolving]
  - Fall [Recovered/Resolved]
  - Fall [Recovered/Resolved]
  - Device issue [Recovered/Resolved]
  - Wrong technique in product usage process [Recovered/Resolved]
  - Physical assault [Recovering/Resolving]
  - Wrong technique in product usage process [Recovered/Resolved]
  - Pain in extremity [Recovered/Resolved]
  - Medical device pain [Recovered/Resolved]
  - Anal fistula [Recovered/Resolved]

NARRATIVE: CASE EVENT DATE: 20200330
